FAERS Safety Report 14904274 (Version 1)
Quarter: 2018Q2

REPORT INFORMATION
  Report Type: Spontaneous
  Country: JP (occurrence: JP)
  Receive Date: 20180516
  Receipt Date: 20180516
  Transmission Date: 20180711
  Serious: Yes (Death, Hospitalization, Other)
  Sender: FDA-Public Use
  Company Number: JP-VISTAPHARM, INC.-VER201805-000645

PATIENT
  Age: 73 Year
  Sex: Male

DRUGS (7)
  1. PREDNISOLONE. [Suspect]
     Active Substance: PREDNISOLONE
  2. RUXOLITINIB [Suspect]
     Active Substance: RUXOLITINIB
  3. HYDROXYUREA. [Concomitant]
     Active Substance: HYDROXYUREA
     Indication: ABDOMINAL DISTENSION
  4. PREDNISOLONE. [Suspect]
     Active Substance: PREDNISOLONE
  5. PREDNISOLONE. [Suspect]
     Active Substance: PREDNISOLONE
     Indication: PRIMARY MYELOFIBROSIS
  6. PREDNISOLONE. [Suspect]
     Active Substance: PREDNISOLONE
  7. RUXOLITINIB [Suspect]
     Active Substance: RUXOLITINIB
     Indication: PRIMARY MYELOFIBROSIS

REACTIONS (2)
  - Respiratory failure [Fatal]
  - Disseminated tuberculosis [Fatal]
